FAERS Safety Report 8950235 (Version 1)
Quarter: 2012Q4

REPORT INFORMATION
  Report Type: 
  Country: US (occurrence: US)
  Receive Date: 20121205
  Receipt Date: 20121205
  Transmission Date: 20130627
  Serious: No
  Sender: FDA-Public Use
  Company Number: US-ASTELLAS-2005000520

PATIENT
  Sex: Female
  Weight: 77 kg

DRUGS (2)
  1. TARCEVA [Suspect]
     Indication: NON-SMALL CELL LUNG CANCER
     Dosage: 150 mg, UID/QD
     Route: 048
     Dates: start: 20050203
  2. TARCEVA [Suspect]
     Dosage: 150 mg
     Route: 048
     Dates: start: 20050215

REACTIONS (11)
  - Vertigo [Unknown]
  - Oral disorder [Unknown]
  - Diarrhoea [Recovering/Resolving]
  - Rash [Recovering/Resolving]
  - Dry skin [Unknown]
  - Ocular hyperaemia [Unknown]
  - Stomatitis [Recovering/Resolving]
  - Cough [Unknown]
  - Ocular hyperaemia [Unknown]
  - Eye pain [Unknown]
  - Skin reaction [Unknown]
